FAERS Safety Report 4626025-9 (Version None)
Quarter: 2005Q1

REPORT INFORMATION
  Report Type: 
  Country: None (occurrence: None)
  Receive Date: 20050330
  Receipt Date: 20050318
  Transmission Date: 20050727
  Serious: Yes (Life-Threatening)
  Sender: FDA-Public Use
  Company Number: 2005046297

PATIENT
  Sex: Female

DRUGS (3)
  1. FRAGMIN [Suspect]
     Indication: INFARCTION
     Dosage: 10000 I.U. (5000 I.U., 2 IN 1 D), PARENTERAL
     Route: 051
     Dates: start: 20041220, end: 20041225
  2. CITICOLINE (CITICOLINE) [Concomitant]
  3. ALL OTHER THERAPEUTIC PRODCUTS (ALL OTHER THERAPEUTIC PRODUCTS) [Concomitant]

REACTIONS (4)
  - COMA [None]
  - ECCHYMOSIS [None]
  - INTRAVENTRICULAR HAEMORRHAGE [None]
  - THALAMUS HAEMORRHAGE [None]
